FAERS Safety Report 20035324 (Version 4)
Quarter: 2021Q4

REPORT INFORMATION
  Report Type: Report from Study
  Country: ES (occurrence: ES)
  Receive Date: 20211104
  Receipt Date: 20211216
  Transmission Date: 20220303
  Serious: Yes (Hospitalization, Other)
  Sender: FDA-Public Use
  Company Number: ES-BRISTOL-MYERS SQUIBB COMPANY-BMS-2021-115096

PATIENT
  Age: 59 Year
  Sex: Male
  Weight: 98 kg

DRUGS (9)
  1. NIVOLUMAB [Suspect]
     Active Substance: NIVOLUMAB
     Indication: Non-small cell lung cancer
     Dosage: 100 MILLILITER
     Route: 042
     Dates: start: 20210713, end: 20210921
  2. RELATLIMAB [Suspect]
     Active Substance: RELATLIMAB
     Indication: Non-small cell lung cancer
     Dosage: 100 MILLILITER
     Route: 042
     Dates: start: 20210713, end: 20210921
  3. CARBOPLATIN [Suspect]
     Active Substance: CARBOPLATIN
     Indication: Non-small cell lung cancer
     Dosage: 750 MILLIGRAM
     Route: 065
     Dates: start: 20210713, end: 20210921
  4. PEMETREXED DISODIUM [Suspect]
     Active Substance: PEMETREXED DISODIUM
     Indication: Non-small cell lung cancer
     Dosage: 1080 MILLIGRAM
     Route: 065
     Dates: start: 20210713, end: 20210921
  5. FENTANYL [Concomitant]
     Active Substance: FENTANYL
     Indication: Product used for unknown indication
     Dosage: 25 MICROGRAM, EVERY 3 DAYS
     Route: 062
     Dates: start: 20210719
  6. ACETAMINOPHEN [Concomitant]
     Active Substance: ACETAMINOPHEN
     Indication: Product used for unknown indication
     Dosage: 1 GRAM, Q8H
     Route: 048
     Dates: start: 20210719
  7. METAMIZOLE [METAMIZOLE SODIUM] [Concomitant]
     Indication: Product used for unknown indication
     Dosage: 575 MILLIGRAM, Q8H
     Route: 048
     Dates: start: 20210719
  8. PFIZER-BIONTECH COVID-19 VACCINE [Concomitant]
     Active Substance: TOZINAMERAN
     Indication: Prophylaxis
     Dosage: UNK
     Route: 030
     Dates: start: 20210511
  9. PFIZER-BIONTECH COVID-19 VACCINE [Concomitant]
     Active Substance: TOZINAMERAN
     Dosage: UNK
     Route: 030
     Dates: start: 20210601

REACTIONS (1)
  - Acute kidney injury [Recovered/Resolved]

NARRATIVE: CASE EVENT DATE: 20211029
